FAERS Safety Report 6901366-0 (Version None)
Quarter: 2010Q3

REPORT INFORMATION
  Report Type: 
  Country: None (occurrence: None)
  Receive Date: 20100803
  Receipt Date: 20080116
  Transmission Date: 20110219
  Serious: Yes (Other)
  Sender: FDA-Public Use
  Company Number: US-PFIZER INC-2008005420

PATIENT
  Sex: Female

DRUGS (1)
  1. LYRICA [Suspect]

REACTIONS (5)
  - ANGIOEDEMA [None]
  - DIARRHOEA [None]
  - HYPERSENSITIVITY [None]
  - RASH PRURITIC [None]
  - VOMITING [None]
